FAERS Safety Report 11112247 (Version 1)
Quarter: 2015Q2

REPORT INFORMATION
  Report Type: Spontaneous
  Country: US (occurrence: None)
  Receive Date: 20150513
  Receipt Date: 20150513
  Transmission Date: 20150821
  Serious: Yes (Disabling)
  Sender: FDA-Public Use
  Company Number: None

PATIENT
  Age: 44 Year
  Sex: Male
  Weight: 83.92 kg

DRUGS (4)
  1. CIPRO [Suspect]
     Active Substance: CIPROFLOXACIN HYDROCHLORIDE
     Indication: URINARY TRACT INFECTION
     Route: 048
     Dates: start: 20150427, end: 20150503
  2. MULTI-VITAMINS [Concomitant]
  3. BUPRENORPHINE [Concomitant]
     Active Substance: BUPRENORPHINE
  4. RITTLIN [Concomitant]

REACTIONS (14)
  - Oropharyngeal pain [None]
  - Impaired work ability [None]
  - Ocular hyperaemia [None]
  - Verbal abuse [None]
  - Confusional state [None]
  - Burning sensation [None]
  - Depression [None]
  - Eye swelling [None]
  - Seizure [None]
  - Psychotic disorder [None]
  - Somnambulism [None]
  - Feeling abnormal [None]
  - Abnormal sleep-related event [None]
  - Muscle twitching [None]

NARRATIVE: CASE EVENT DATE: 20150427
